FAERS Safety Report 4580186-9 (Version None)
Quarter: 2005Q1

REPORT INFORMATION
  Report Type: 
  Country: None (occurrence: None)
  Receive Date: 20050214
  Receipt Date: 20050131
  Transmission Date: 20050727
  Serious: Yes (Other)
  Sender: FDA-Public Use
  Company Number: PHHO2005AR02029

PATIENT
  Age: 71 Year
  Sex: Male

DRUGS (1)
  1. ZELMAC / HTF 919A [Suspect]

REACTIONS (1)
  - CONSTIPATION [None]
